FAERS Safety Report 5419044-6 (Version None)
Quarter: 2007Q3

REPORT INFORMATION
  Report Type: 
  Country: None (occurrence: None)
  Receive Date: 20070820
  Receipt Date: 20070816
  Transmission Date: 20080115
  Serious: Yes (Other)
  Sender: FDA-Public Use
  Company Number: PHNU2007DE02260

PATIENT
  Sex: Female

DRUGS (1)
  1. EXFORGE [Suspect]
     Route: 048
     Dates: start: 20070101

REACTIONS (1)
  - PSORIASIS [None]
